FAERS Safety Report 12268990 (Version 1)
Quarter: 2016Q2

REPORT INFORMATION
  Report Type: Spontaneous
  Country: DE (occurrence: DE)
  Receive Date: 20160414
  Receipt Date: 20160414
  Transmission Date: 20160815
  Serious: Yes (Disabling)
  Sender: FDA-Public Use
  Company Number: DE-B.I. PHARMACEUTICALS,INC./RIDGEFIELD-2016-BI-17423DE

PATIENT
  Age: 55 Year
  Sex: Male
  Weight: 129 kg

DRUGS (7)
  1. RASILEZ/HCT [Concomitant]
     Indication: ESSENTIAL HYPERTENSION
     Dosage: 300/25
     Route: 048
     Dates: start: 2013
  2. METFORMIN [Suspect]
     Active Substance: METFORMIN HYDROCHLORIDE
     Indication: DIABETES MELLITUS
     Dosage: 2000 MG
     Route: 048
     Dates: start: 2011
  3. DAFIRO [Concomitant]
     Active Substance: AMLODIPINE\VALSARTAN
     Indication: ESSENTIAL HYPERTENSION
     Dosage: DAILY DOSE AND DOSE PER APPLICATION: 10/160
     Route: 065
     Dates: start: 2013
  4. ALLOPURINOL. [Concomitant]
     Active Substance: ALLOPURINOL
     Indication: PRODUCT USED FOR UNKNOWN INDICATION
     Dosage: STRENGTH: 300
     Route: 065
  5. JARDIANCE [Suspect]
     Active Substance: EMPAGLIFLOZIN
     Indication: TYPE 2 DIABETES MELLITUS
     Dosage: 10 MG
     Route: 048
     Dates: start: 20160219, end: 20160225
  6. BISOPROLOL [Concomitant]
     Active Substance: BISOPROLOL
     Indication: ESSENTIAL HYPERTENSION
     Dosage: 5 MG
     Route: 048
     Dates: start: 2011
  7. CARMEN ACE [Concomitant]
     Active Substance: ENALAPRIL MALEATE\LERCANIDIPINE HYDROCHLORIDE
     Indication: ESSENTIAL HYPERTENSION
     Dosage: DAILY DOSE AND DOSE PER APPLICATION: 20/10
     Route: 048
     Dates: start: 2013

REACTIONS (7)
  - Back pain [Recovered/Resolved]
  - General physical health deterioration [Unknown]
  - Dizziness [Recovered/Resolved]
  - Diarrhoea [Recovered/Resolved]
  - Cardiovascular disorder [Recovered/Resolved]
  - Cough [Recovered/Resolved]
  - Chest pain [Recovered/Resolved]

NARRATIVE: CASE EVENT DATE: 20160221
